FAERS Safety Report 24395691 (Version 1)
Quarter: 2024Q4

REPORT INFORMATION
  Report Type: Spontaneous
  Country: US (occurrence: US)
  Receive Date: 20241004
  Receipt Date: 20241004
  Transmission Date: 20250114
  Serious: Yes (Hospitalization)
  Sender: AZURITY PHARMACEUTICALS
  Company Number: US-APCER-AZR202409-000698

PATIENT
  Age: 14 Year
  Sex: Male

DRUGS (5)
  1. DEXTROAMPHETAMINE SULFATE [Suspect]
     Active Substance: DEXTROAMPHETAMINE SULFATE
     Indication: Intentional overdose
     Dosage: 30 DOSAGE FORM, UNK
     Route: 065
  2. IBUPROFEN [Suspect]
     Active Substance: IBUPROFEN
     Indication: Intentional overdose
     Dosage: UNK
     Route: 065
  3. IBUPROFEN [Suspect]
     Active Substance: IBUPROFEN
     Indication: Abdominal pain
  4. ASPIRIN [Suspect]
     Active Substance: ASPIRIN
     Indication: Intentional overdose
     Dosage: 15-20 TABLETS
     Route: 065
  5. MELOXICAM [Suspect]
     Active Substance: MELOXICAM
     Indication: Intentional overdose
     Dosage: 2 TABLETS, UNK
     Route: 065

REACTIONS (7)
  - Gastrointestinal ulcer [Unknown]
  - Metabolic alkalosis [Unknown]
  - Hypokalaemia [Unknown]
  - Overdose [Unknown]
  - Headache [Unknown]
  - Tachycardia [Unknown]
  - Agitation [Unknown]
